FAERS Safety Report 11781073 (Version 4)
Quarter: 2016Q1

REPORT INFORMATION
  Report Type: Spontaneous
  Country: US (occurrence: US)
  Receive Date: 20151126
  Receipt Date: 20160106
  Transmission Date: 20160525
  Serious: Yes (Hospitalization)
  Sender: FDA-Public Use
  Company Number: US-009507513-1511USA005993

PATIENT
  Age: 56 Year
  Sex: Male

DRUGS (15)
  1. METFORMIN [Concomitant]
     Active Substance: METFORMIN HYDROCHLORIDE
  2. INVANZ [Suspect]
     Active Substance: ERTAPENEM SODIUM
     Indication: DIABETIC FOOT INFECTION
     Dosage: 1 MG
     Route: 042
     Dates: start: 20151008, end: 20151119
  3. INVANZ [Suspect]
     Active Substance: ERTAPENEM SODIUM
     Indication: STAPHYLOCOCCAL INFECTION
  4. ACETAMINOPHEN. [Concomitant]
     Active Substance: ACETAMINOPHEN
  5. COUMADIN [Concomitant]
     Active Substance: WARFARIN SODIUM
  6. PIOGLITAZONE. [Concomitant]
     Active Substance: PIOGLITAZONE
  7. INVANZ [Suspect]
     Active Substance: ERTAPENEM SODIUM
     Indication: OSTEOMYELITIS
  8. ALBUTEROL SULFATE. [Concomitant]
     Active Substance: ALBUTEROL SULFATE
  9. GLIPIZIDE. [Concomitant]
     Active Substance: GLIPIZIDE
  10. HYDROCOTISONE [Concomitant]
  11. INVANZ [Suspect]
     Active Substance: ERTAPENEM SODIUM
     Indication: STAPHYLOCOCCAL BACTERAEMIA
  12. HYDROCODONE [Concomitant]
     Active Substance: HYDROCODONE
  13. APAP [Concomitant]
     Active Substance: ACETAMINOPHEN
  14. LISINOPRIL. [Concomitant]
     Active Substance: LISINOPRIL
  15. ZETIA [Concomitant]
     Active Substance: EZETIMIBE

REACTIONS (6)
  - Osteomyelitis [Unknown]
  - Adverse event [Unknown]
  - Staphylococcal bacteraemia [Unknown]
  - Staphylococcal infection [Unknown]
  - Diabetic foot infection [Unknown]
  - Drug dose omission [Unknown]

NARRATIVE: CASE EVENT DATE: 20151027
